FAERS Safety Report 5588594-4 (Version None)
Quarter: 2008Q1

REPORT INFORMATION
  Report Type: 
  Country: None (occurrence: None)
  Receive Date: 20080111
  Receipt Date: 20080110
  Transmission Date: 20080703
  Serious: Yes (Other)
  Sender: FDA-Public Use
  Company Number: US-PURDUE-USA_2007_0029979

PATIENT
  Age: 57 Year
  Sex: Male

DRUGS (3)
  1. OXYCONTIN [Suspect]
     Indication: PAIN
     Dosage: 80 MG, Q12H
     Route: 048
     Dates: start: 20071029
  2. NORCO [Concomitant]
     Indication: PAIN
     Dosage: 10 MG, UNK
     Route: 048
  3. FENTANYL [Concomitant]
     Indication: PAIN
     Dosage: UNK MG, UNK
     Route: 062

REACTIONS (9)
  - DEPRESSION [None]
  - DRUG EFFECT DECREASED [None]
  - DRUG EFFECT INCREASED [None]
  - DRUG TOLERANCE [None]
  - DRUG WITHDRAWAL SYNDROME [None]
  - INSOMNIA [None]
  - MUSCLE SPASMS [None]
  - PAIN IN EXTREMITY [None]
  - SUICIDAL IDEATION [None]
